FAERS Safety Report 5953252-0 (Version None)
Quarter: 2008Q4

REPORT INFORMATION
  Report Type: 
  Country: None (occurrence: None)
  Receive Date: 20081114
  Receipt Date: 20081106
  Transmission Date: 20090506
  Serious: Yes (Other)
  Sender: FDA-Public Use
  Company Number: PHEH2008US09998

PATIENT
  Sex: Female

DRUGS (1)
  1. RECLAST [Suspect]
     Indication: OSTEOPOROSIS
     Dosage: UNK
     Route: 042
     Dates: start: 20080601

REACTIONS (6)
  - ANAEMIA [None]
  - ARTHRALGIA [None]
  - HYPOAESTHESIA [None]
  - MULTIPLE MYELOMA [None]
  - MYALGIA [None]
  - PROTEIN TOTAL ABNORMAL [None]
